FAERS Safety Report 21019702 (Version 2)
Quarter: 2022Q3

REPORT INFORMATION
  Report Type: Spontaneous
  Country: US (occurrence: US)
  Receive Date: 20220628
  Receipt Date: 20220716
  Transmission Date: 20221026
  Serious: No
  Sender: FDA-Public Use
  Company Number: US-SANOFI-01160604

PATIENT
  Age: 16 Year
  Sex: Female

DRUGS (2)
  1. DUPIXENT [Suspect]
     Active Substance: DUPILUMAB
     Indication: Asthma
     Dosage: UNKNOWN DOSE
  2. DUPIXENT [Suspect]
     Active Substance: DUPILUMAB
     Dosage: 300 MG, QM

REACTIONS (2)
  - Inappropriate schedule of product administration [Unknown]
  - Product dose omission issue [Unknown]
